FAERS Safety Report 13096782 (Version 1)
Quarter: 2017Q1

REPORT INFORMATION
  Report Type: Spontaneous
  Country: DE (occurrence: DE)
  Receive Date: 20170109
  Receipt Date: 20170109
  Transmission Date: 20170428
  Serious: Yes (Congenital Anomaly, Other)
  Sender: FDA-Public Use
  Company Number: DE-MYLANLABS-2016M1058586

PATIENT
  Age: 1 Day
  Sex: Male
  Weight: 3 kg

DRUGS (2)
  1. QUETIAPINE. [Suspect]
     Active Substance: QUETIAPINE
     Indication: BORDERLINE PERSONALITY DISORDER
     Dosage: 500 [MG/D ]/ 200-0-300 MG/D
     Route: 064
     Dates: start: 20151210, end: 20160809
  2. QUETIAPIN AUROBINDO [Suspect]
     Active Substance: QUETIAPINE
     Indication: BORDERLINE PERSONALITY DISORDER
     Dosage: 100 [MG/D ]/ BY NIGHT
     Route: 064
     Dates: start: 20151210, end: 20160809

REACTIONS (2)
  - Respiratory disorder neonatal [Recovered/Resolved]
  - Haemangioma congenital [Not Recovered/Not Resolved]

NARRATIVE: CASE EVENT DATE: 20160808
